FAERS Safety Report 5711565-1 (Version None)
Quarter: 2008Q2

REPORT INFORMATION
  Report Type: 
  Country: None (occurrence: None)
  Receive Date: 20080418
  Receipt Date: 20080418
  Transmission Date: 20081010
  Serious: Yes (Life-Threatening, Hospitalization, Other)
  Sender: FDA-Public Use
  Company Number: None

PATIENT
  Sex: Female
  Weight: 90.7194 kg

DRUGS (1)
  1. PAXIL [Suspect]
     Indication: PANIC REACTION

REACTIONS (7)
  - AGGRESSION [None]
  - FEELING ABNORMAL [None]
  - HEADACHE [None]
  - HOMICIDAL IDEATION [None]
  - HYPOAESTHESIA [None]
  - ILL-DEFINED DISORDER [None]
  - SUICIDAL IDEATION [None]
